FAERS Safety Report 15098164 (Version 2)
Quarter: 2018Q4

REPORT INFORMATION
  Report Type: Report from Study
  Country: FR (occurrence: FR)
  Receive Date: 20180702
  Receipt Date: 20181105
  Transmission Date: 20190204
  Serious: Yes (Life-Threatening, Hospitalization)
  Sender: FDA-Public Use
  Company Number: FR-GUERBET-FR-20180357

PATIENT
  Age: 4 Year
  Sex: Male

DRUGS (6)
  1. DOTAREM [Suspect]
     Active Substance: GADOTERATE MEGLUMINE
     Indication: NUCLEAR MAGNETIC RESONANCE IMAGING BRAIN
     Route: 042
     Dates: start: 20170921, end: 20170921
  2. CHLORAL HYDRATE [Concomitant]
     Active Substance: CHLORAL HYDRATE
     Indication: PREMEDICATION
     Route: 054
     Dates: start: 20170921, end: 20170921
  3. CLAFORAN [Concomitant]
     Active Substance: CEFOTAXIME SODIUM
     Indication: ENCEPHALITIS
     Route: 042
     Dates: start: 20170915, end: 20170920
  4. FLIXOTIDE [Concomitant]
     Active Substance: FLUTICASONE PROPIONATE
     Indication: CHILDHOOD ASTHMA
     Route: 065
  5. ZOVIRAX [Concomitant]
     Active Substance: ACYCLOVIR
     Indication: ENCEPHALITIS
     Route: 042
     Dates: start: 20170915, end: 20170920
  6. VALIUM [Concomitant]
     Active Substance: DIAZEPAM
     Indication: GENERALISED TONIC-CLONIC SEIZURE
     Route: 065

REACTIONS (7)
  - Chills [Recovered/Resolved]
  - Renal failure [Recovered/Resolved]
  - Hyperthermia [Recovered/Resolved]
  - Diarrhoea [Recovered/Resolved]
  - Hepatic failure [Recovered/Resolved]
  - Coma [Recovered/Resolved]
  - Reye^s syndrome [Recovered/Resolved]

NARRATIVE: CASE EVENT DATE: 20170921
